FAERS Safety Report 5645231-8 (Version None)
Quarter: 2008Q1

REPORT INFORMATION
  Report Type: 
  Country: None (occurrence: None)
  Receive Date: 20080229
  Receipt Date: 20080220
  Transmission Date: 20080703
  Serious: Yes (Other)
  Sender: FDA-Public Use
  Company Number: US-JNJFOC-20080105257

PATIENT
  Sex: Female
  Weight: 81.65 kg

DRUGS (4)
  1. ULTRACET [Suspect]
     Indication: ARTHRALGIA
     Route: 048
  2. ULTRACET [Suspect]
     Indication: BACK PAIN
     Route: 048
  3. LYRICA [Concomitant]
     Indication: ARTHRALGIA
     Route: 048
  4. LYRICA [Concomitant]
     Indication: BACK PAIN
     Route: 048

REACTIONS (1)
  - LOW DENSITY LIPOPROTEIN INCREASED [None]
